FAERS Safety Report 4542657-0 (Version None)
Quarter: 2004Q4

REPORT INFORMATION
  Report Type: 
  Country: None (occurrence: None)
  Receive Date: 20041230
  Receipt Date: 20030609
  Transmission Date: 20050328
  Serious: Yes (Hospitalization)
  Sender: FDA-Public Use
  Company Number: US-MERCK-0306USA01227

PATIENT
  Age: 61 Year
  Sex: Male

DRUGS (5)
  1. VIOXX [Suspect]
     Indication: PAIN
     Route: 048
  2. DIOVAN [Concomitant]
     Route: 065
  3. ZOCOR [Concomitant]
     Route: 065
  4. DAPSONE [Concomitant]
     Route: 065
  5. TOPROL-XL [Concomitant]
     Route: 065

REACTIONS (26)
  - ACTINIC KERATOSIS [None]
  - ANAEMIA [None]
  - ANGINA PECTORIS [None]
  - ATRIAL FIBRILLATION [None]
  - ATRIOVENTRICULAR BLOCK [None]
  - BODY TINEA [None]
  - CARDIOVASCULAR DISORDER [None]
  - CAROTID ARTERY STENOSIS [None]
  - CORONARY ARTERY OCCLUSION [None]
  - DERMATITIS [None]
  - DIVERTICULUM [None]
  - ECZEMA [None]
  - EPIDERMAL NECROSIS [None]
  - ERYTHEMA MULTIFORME [None]
  - GRANULOMA ANNULARE [None]
  - HYPERTENSION [None]
  - LEUKOCYTOCLASTIC VASCULITIS [None]
  - MYOCARDIAL ISCHAEMIA [None]
  - NAIL BED BLEEDING [None]
  - ONYCHOLYSIS [None]
  - POLYP [None]
  - PRURITUS ANI [None]
  - PSORIASIS [None]
  - RENAL DISORDER [None]
  - RENAL FAILURE [None]
  - VASCULITIS [None]
